FAERS Safety Report 7410648-8 (Version None)
Quarter: 2011Q2

REPORT INFORMATION
  Report Type: 
  Country: None (occurrence: None)
  Receive Date: 20110413
  Receipt Date: 20110318
  Transmission Date: 20111010
  Serious: Yes (Hospitalization)
  Sender: FDA-Public Use
  Company Number: US-BAYER-201015818NA

PATIENT
  Age: 40 Year
  Sex: Female
  Weight: 92 kg

DRUGS (5)
  1. WARFARIN [Concomitant]
     Dosage: UNK
     Dates: start: 20080101, end: 20090101
  2. ANTIBIOTICS [Concomitant]
  3. YAZ [Suspect]
     Indication: PRODUCT USED FOR UNKNOWN INDICATION
     Dosage: UNK
     Dates: start: 20071001, end: 20090101
  4. MINOCYCLINE [Concomitant]
  5. NSAID'S [Concomitant]

REACTIONS (2)
  - THROMBOSIS [None]
  - PULMONARY EMBOLISM [None]
